FAERS Safety Report 13511345 (Version 1)
Quarter: 2017Q2

REPORT INFORMATION
  Report Type: Spontaneous
  Country: CN (occurrence: CN)
  Receive Date: 20170504
  Receipt Date: 20170504
  Transmission Date: 20170830
  Serious: Yes (Other)
  Sender: FDA-Public Use
  Company Number: CN-UNITED THERAPEUTICS-UNT-2017-006043

PATIENT
  Age: 0 Year
  Sex: Male
  Weight: 1.6 kg

DRUGS (4)
  1. REMODULIN [Suspect]
     Active Substance: TREPROSTINIL
     Dosage: 0.00525 ?G/KG, CONTINUING
     Route: 064
     Dates: start: 20170415, end: 20170416
  2. REMODULIN [Suspect]
     Active Substance: TREPROSTINIL
     Indication: PRODUCT USED FOR UNKNOWN INDICATION
     Dosage: 0.00225 ?G/KG, CONTINUING
     Route: 064
     Dates: start: 20170413, end: 20170415
  3. REMODULIN [Suspect]
     Active Substance: TREPROSTINIL
     Dosage: 0.0075 ?G/KG, CONTINUING
     Route: 064
     Dates: start: 20170416, end: 20170419
  4. REMODULIN [Suspect]
     Active Substance: TREPROSTINIL
     Dosage: 0.010 ?G/KG, CONTINUING
     Route: 064
     Dates: start: 20170416, end: 20170416

REACTIONS (3)
  - Foetal exposure during pregnancy [Recovered/Resolved]
  - Low birth weight baby [Unknown]
  - Premature baby [Unknown]

NARRATIVE: CASE EVENT DATE: 20170413
